FAERS Safety Report 5635356-5 (Version None)
Quarter: 2008Q1

REPORT INFORMATION
  Report Type: 
  Country: None (occurrence: None)
  Receive Date: 20080222
  Receipt Date: 20080213
  Transmission Date: 20080703
  Serious: Yes (Other)
  Sender: FDA-Public Use
  Company Number: GB-PFIZER INC-2008012850

PATIENT
  Sex: Male
  Weight: 80 kg

DRUGS (3)
  1. LIPITOR [Suspect]
     Route: 048
     Dates: start: 20080116, end: 20080126
  2. ACETAMINOPHEN [Concomitant]
  3. GAVISCON [Concomitant]

REACTIONS (3)
  - INSOMNIA [None]
  - RASH [None]
  - RASH MACULAR [None]
